FAERS Safety Report 6127672-8 (Version None)
Quarter: 2009Q1

REPORT INFORMATION
  Report Type: 
  Country: None (occurrence: None)
  Receive Date: 20090323
  Receipt Date: 20061127
  Transmission Date: 20090719
  Serious: No
  Sender: FDA-Public Use
  Company Number: US-ABBOTT-08P-163-0468385-00

PATIENT
  Sex: Male

DRUGS (1)
  1. ERYTHROMYCIN [Suspect]
     Indication: ACNE

REACTIONS (1)
  - SPECIFIC GRAVITY URINE ABNORMAL [None]
